FAERS Safety Report 8926342 (Version 12)
Quarter: 2015Q2

REPORT INFORMATION
  Report Type: Spontaneous
  Country: US (occurrence: US)
  Receive Date: 20121127
  Receipt Date: 20150519
  Transmission Date: 20150821
  Serious: Yes (Hospitalization, Other)
  Sender: FDA-Public Use
  Company Number: US-GLAXOSMITHKLINE-A0998540A

PATIENT
  Age: 37 Year
  Sex: Female
  Weight: 66.8 kg

DRUGS (15)
  1. FLOLAN [Suspect]
     Active Substance: EPOPROSTENOL SODIUM
     Dosage: UNK
     Dates: start: 20090429
  2. FLOLAN [Suspect]
     Active Substance: EPOPROSTENOL SODIUM
     Dosage: UNK
     Dates: start: 20090429
  3. LASIX [Concomitant]
     Active Substance: FUROSEMIDE
  4. FLOLAN [Suspect]
     Active Substance: EPOPROSTENOL SODIUM
     Dosage: UNK
  5. FLOLAN [Suspect]
     Active Substance: EPOPROSTENOL SODIUM
     Dosage: 93 NG/KG/MIN, CO
     Route: 042
  6. FLOLAN [Suspect]
     Active Substance: EPOPROSTENOL SODIUM
     Dosage: 93 NG/KG/MIN, CO
     Route: 042
  7. SPIRONOLACTONE. [Concomitant]
     Active Substance: SPIRONOLACTONE
  8. ZAROXOLYN [Concomitant]
     Active Substance: METOLAZONE
  9. FLOLAN [Suspect]
     Active Substance: EPOPROSTENOL SODIUM
     Indication: PULMONARY ARTERIAL HYPERTENSION
     Dosage: 47 NG/KG/MIN CONTINUOUSCONCENTRATION: 75,000 NG/MLVIAL STRENGTH: 1.5 MGDOSE: 66.18 NG/KG/MIN, C[...]
     Route: 042
     Dates: start: 20090429
  10. FLOLAN [Suspect]
     Active Substance: EPOPROSTENOL SODIUM
     Dosage: 96 NG/KG/MIN CONTINUOUS; CONCENTRATION: 135,000 NG/ML; PUMP RATE: 87 ML/DAY; VIAL STRENGTH: 1.5 MG
     Route: 042
     Dates: start: 20090429
  11. FLOLAN [Suspect]
     Active Substance: EPOPROSTENOL SODIUM
     Dosage: 93 NG/KG/MIN, CO
     Dates: end: 201505
  12. FLOLAN [Suspect]
     Active Substance: EPOPROSTENOL SODIUM
     Dosage: UNK
     Dates: start: 20090429
  13. FLOLAN [Suspect]
     Active Substance: EPOPROSTENOL SODIUM
     Dosage: 93 NG/KG/MIN CONTINUOUS; CONCENTRATION: 135,000 NG/ML; PUMP RATE: 85 ML/DAY; VIAL STRENGTH: 1.5 MG
     Route: 042
     Dates: start: 20090429
  14. FLOLAN [Suspect]
     Active Substance: EPOPROSTENOL SODIUM
     Dosage: 93 NG/KG/MIN, CO
     Route: 042
  15. REVATIO [Concomitant]
     Active Substance: SILDENAFIL CITRATE

REACTIONS (17)
  - Dyspnoea [Unknown]
  - Device infusion issue [Recovered/Resolved]
  - Miliaria [Unknown]
  - Pulmonary arterial hypertension [Unknown]
  - Abdominal pain upper [Recovered/Resolved]
  - Malaise [Recovered/Resolved]
  - Drug administration error [Recovered/Resolved]
  - Renal failure [Unknown]
  - Catheter site haemorrhage [Recovered/Resolved]
  - Therapy cessation [Recovered/Resolved]
  - Pulmonary hypertension [Unknown]
  - Feeling hot [Recovered/Resolved]
  - Flushing [Recovered/Resolved]
  - Hypotension [Unknown]
  - Lung transplant [Unknown]
  - Device leakage [Recovered/Resolved]
  - Anxiety [Recovered/Resolved]

NARRATIVE: CASE EVENT DATE: 20121009
